FAERS Safety Report 8166765-0 (Version None)
Quarter: 2012Q1

REPORT INFORMATION
  Report Type: 
  Country: None (occurrence: None)
  Receive Date: 20120227
  Receipt Date: 20120215
  Transmission Date: 20120608
  Serious: Yes (Hospitalization)
  Sender: FDA-Public Use
  Company Number: GB-ROCHE-1040479

PATIENT
  Sex: Female
  Weight: 48 kg

DRUGS (1)
  1. MABTHERA [Suspect]
     Indication: RHEUMATOID ARTHRITIS
     Dosage: LAST DOSE PRIOR TO SAE: 15 FEB 2010
     Route: 065
     Dates: start: 20100115

REACTIONS (2)
  - INTRAOCULAR LENS IMPLANT [None]
  - CATARACT OPERATION [None]
